FAERS Safety Report 21624656 (Version 2)
Quarter: 2023Q1

REPORT INFORMATION
  Report Type: Spontaneous
  Country: TR (occurrence: TR)
  Receive Date: 20221121
  Receipt Date: 20230123
  Transmission Date: 20230417
  Serious: Yes (Other)
  Sender: FDA-Public Use
  Company Number: TR-SUN PHARMACEUTICAL INDUSTRIES LTD-2022RR-364720

PATIENT
  Age: 37 Year
  Sex: Female

DRUGS (3)
  1. DULOXETINE HYDROCHLORIDE [Suspect]
     Active Substance: DULOXETINE HYDROCHLORIDE
     Indication: Major depression
     Dosage: 30 MILLIGRAM, DAILY
     Route: 065
  2. DULOXETINE HYDROCHLORIDE [Suspect]
     Active Substance: DULOXETINE HYDROCHLORIDE
     Dosage: 60 MILLIGRAM, DAILY
     Route: 065
  3. CYANOCOBALAMIN [Concomitant]
     Active Substance: CYANOCOBALAMIN
     Indication: Major depression
     Dosage: 1000 MICROGRAM, WEEKLY, 4 INJECTIONS IN TOTAL
     Route: 030

REACTIONS (3)
  - Amenorrhoea [Unknown]
  - Galactorrhoea [Unknown]
  - Hyperprolactinaemia [Recovered/Resolved]
